FAERS Safety Report 18663507 (Version 1)
Quarter: 2020Q4

REPORT INFORMATION
  Report Type: Spontaneous
  Country: US (occurrence: US)
  Receive Date: 20201224
  Receipt Date: 20201224
  Transmission Date: 20210114
  Serious: Yes (Death, Hospitalization, Other)
  Sender: FDA-Public Use
  Company Number: US-TAKEDA-2020TUS060251

PATIENT
  Age: 60 Year
  Sex: Female

DRUGS (3)
  1. VELCADE [Suspect]
     Active Substance: BORTEZOMIB
     Indication: AMYLOIDOSIS
     Dosage: 1.3 MILLIGRAM/SQ. METER, 1/WEEK
     Route: 058
  2. DEXAMETHASONE. [Suspect]
     Active Substance: DEXAMETHASONE
     Indication: AMYLOIDOSIS
     Dosage: 40 MILLIGRAM, 1/WEEK
     Route: 048
  3. CYCLOPHOSPHAMIDE. [Suspect]
     Active Substance: CYCLOPHOSPHAMIDE
     Indication: AMYLOIDOSIS
     Dosage: 260 MILLIGRAM, 1/WEEK
     Route: 042

REACTIONS (3)
  - Off label use [Unknown]
  - Clostridium difficile colitis [Fatal]
  - Megacolon [Fatal]
